FAERS Safety Report 6891342-9 (Version None)
Quarter: 2010Q3

REPORT INFORMATION
  Report Type: 
  Country: None (occurrence: None)
  Receive Date: 20100731
  Receipt Date: 20090806
  Transmission Date: 20110219
  Serious: No
  Sender: FDA-Public Use
  Company Number: US-PFIZER INC-2007010273

PATIENT
  Sex: Female
  Weight: 54 kg

DRUGS (9)
  1. LIPITOR [Suspect]
     Indication: CORONARY ARTERY DISEASE
     Dosage: 10 MG, 1X/DAY
     Route: 048
     Dates: start: 20061028, end: 20070301
  2. LIPITOR [Suspect]
     Indication: HYPERLIPIDAEMIA
  3. CARDIZEM [Concomitant]
     Dosage: UNK
  4. EVISTA [Concomitant]
     Indication: OSTEOPENIA
     Dosage: UNK
  5. ACETYLSALICYLIC ACID SRT [Concomitant]
     Dosage: UNK
  6. VITAMIN D [Concomitant]
     Dosage: UNK
  7. CALCIUM [Concomitant]
     Dosage: UNK
  8. WARFARIN SODIUM [Concomitant]
     Dosage: UNK
  9. PLAVIX [Concomitant]
     Dosage: UNK

REACTIONS (8)
  - ALANINE AMINOTRANSFERASE INCREASED [None]
  - ASPARTATE AMINOTRANSFERASE INCREASED [None]
  - HAEMATOMA [None]
  - LIMB INJURY [None]
  - MYALGIA [None]
  - OEDEMA PERIPHERAL [None]
  - PAIN IN EXTREMITY [None]
  - WEIGHT DECREASED [None]
